FAERS Safety Report 4563747-2 (Version None)
Quarter: 2005Q1

REPORT INFORMATION
  Report Type: 
  Country: None (occurrence: None)
  Receive Date: 20050128
  Receipt Date: 20041124
  Transmission Date: 20050727
  Serious: Yes (Hospitalization)
  Sender: FDA-Public Use
  Company Number: 200419142US

PATIENT
  Age: 77 Year
  Sex: Male

DRUGS (7)
  1. KETEK [Suspect]
     Indication: SINUSITIS
     Dates: start: 20041116, end: 20041118
  2. CRESTOR [Suspect]
     Indication: HYPERCHOLESTEROLAEMIA
  3. CRESTOR [Suspect]
     Indication: HYPERLIPIDAEMIA
  4. CHLOR-TRIMETON [Concomitant]
  5. PROSCAR [Concomitant]
     Indication: BENIGN PROSTATIC HYPERPLASIA
  6. NASALCROM [Concomitant]
     Indication: HYPERSENSITIVITY
  7. OCUVITE [Concomitant]

REACTIONS (16)
  - ARRHYTHMIA [None]
  - BLOOD PRESSURE DIASTOLIC INCREASED [None]
  - BODY TEMPERATURE DECREASED [None]
  - CHEST PAIN [None]
  - DIRECTIONAL DOPPLER FLOW TESTS ABNORMAL [None]
  - DRUG INTERACTION [None]
  - HYPERHIDROSIS [None]
  - LOSS OF CONSCIOUSNESS [None]
  - MITRAL VALVE INCOMPETENCE [None]
  - MYOCARDIAL ISCHAEMIA [None]
  - RESPIRATORY RATE INCREASED [None]
  - SUPRAVENTRICULAR EXTRASYSTOLES [None]
  - SYNCOPE [None]
  - TRICUSPID VALVE INCOMPETENCE [None]
  - VENTRICULAR EXTRASYSTOLES [None]
  - VENTRICULAR HYPERTROPHY [None]
